FAERS Safety Report 9467902 (Version 2)
Quarter: 2014Q3

REPORT INFORMATION
  Report Type: Report from Study
  Country: MX (occurrence: MX)
  Receive Date: 20130821
  Receipt Date: 20140714
  Transmission Date: 20150326
  Serious: Yes (Other)
  Sender: FDA-Public Use
  Company Number: PHHY2013MX090355

PATIENT
  Age: 49 Year
  Sex: Male

DRUGS (3)
  1. CO-DIOVAN [Suspect]
     Active Substance: HYDROCHLOROTHIAZIDE\VALSARTAN
     Indication: HYPERTENSION
     Dosage: 2 DF (320/12.5MG) DAILY
     Route: 048
     Dates: end: 201203
  2. ASPIRIN PROTECT [Concomitant]
     Active Substance: ASPIRIN
     Dosage: 1 UKN, DAILY
     Dates: start: 201212
  3. CO-DIOVAN [Suspect]
     Active Substance: HYDROCHLOROTHIAZIDE\VALSARTAN
     Dosage: 1 DF (320/12.5MG) DAILY
     Route: 048
     Dates: start: 201203, end: 201209

REACTIONS (7)
  - Haemorrhage [Recovered/Resolved]
  - Oedema peripheral [Recovered/Resolved]
  - Blood uric acid increased [Recovered/Resolved]
  - Weight decreased [Recovered/Resolved]
  - Malaise [Recovered/Resolved]
  - Asphyxia [Recovered/Resolved]
  - Drug ineffective [Recovered/Resolved]

NARRATIVE: CASE EVENT DATE: 201203
